FAERS Safety Report 4824128-7 (Version None)
Quarter: 2005Q4

REPORT INFORMATION
  Report Type: 
  Country: None (occurrence: None)
  Receive Date: 20051108
  Receipt Date: 20051021
  Transmission Date: 20060501
  Serious: Yes (Other)
  Sender: FDA-Public Use
  Company Number: USA0510112012

PATIENT
  Age: 21 Year
  Sex: Male

DRUGS (2)
  1. HUMATROPE [Suspect]
     Indication: MALIGNANT HISTIOCYTOSIS
     Dosage: 2 MG/5 WEEK
  2. THYROID HORMONE [Concomitant]

REACTIONS (2)
  - CONVULSION [None]
  - INSULIN-LIKE GROWTH FACTOR DECREASED [None]
